FAERS Safety Report 6854880-0 (Version None)
Quarter: 2010Q3

REPORT INFORMATION
  Report Type: 
  Country: None (occurrence: None)
  Receive Date: 20100717
  Receipt Date: 20080317
  Transmission Date: 20110219
  Serious: No
  Sender: FDA-Public Use
  Company Number: US-PFIZER INC-2008004102

PATIENT
  Sex: Female
  Weight: 62.6 kg

DRUGS (9)
  1. CHANTIX [Suspect]
     Indication: SMOKING CESSATION THERAPY
     Route: 048
     Dates: start: 20071101
  2. ZOLOFT [Suspect]
     Indication: DEPRESSION
  3. ADVAIR DISKUS 100/50 [Suspect]
     Route: 055
  4. PRILOSEC [Concomitant]
  5. LEVOXYL [Concomitant]
  6. MINOCYCLINE [Concomitant]
  7. NASONEX [Concomitant]
  8. ACETYLSALICYLIC ACID [Concomitant]
  9. MULTI-VITAMINS [Concomitant]

REACTIONS (6)
  - BLOOD CHOLESTEROL INCREASED [None]
  - HEADACHE [None]
  - MYALGIA [None]
  - NAUSEA [None]
  - UNEVALUABLE EVENT [None]
  - VOMITING [None]
